FAERS Safety Report 20581616 (Version 1)
Quarter: 2022Q1

REPORT INFORMATION
  Report Type: Spontaneous
  Country: US (occurrence: US)
  Receive Date: 20220311
  Receipt Date: 20220311
  Transmission Date: 20220423
  Serious: Yes (Hospitalization, Other)
  Sender: FDA-Public Use
  Company Number: US-SUN PHARMACEUTICAL INDUSTRIES LTD-2019R1-232109

PATIENT
  Age: 64 Year
  Sex: Male

DRUGS (2)
  1. LOPERAMIDE [Suspect]
     Active Substance: LOPERAMIDE
     Indication: Diarrhoea
     Dosage: 20 MILLIGRAM, DAILY
     Route: 065
  2. SIMVASTATIN [Concomitant]
     Active Substance: SIMVASTATIN
     Indication: Diarrhoea
     Dosage: UNK
     Route: 065

REACTIONS (3)
  - Torsade de pointes [Recovered/Resolved]
  - Drug level above therapeutic [Unknown]
  - Atrioventricular block complete [Recovered/Resolved]
